FAERS Safety Report 7049470-3 (Version None)
Quarter: 2010Q4

REPORT INFORMATION
  Report Type: 
  Country: None (occurrence: None)
  Receive Date: 20101007
  Receipt Date: 20100928
  Transmission Date: 20110411
  Serious: Yes (Other)
  Sender: FDA-Public Use
  Company Number: DSU-2010-05126

PATIENT
  Sex: Male
  Weight: 83.9154 kg

DRUGS (2)
  1. AZOR [Suspect]
     Indication: HYPERTENSION
     Dosage: 5/40MG (QD), PER ORAL
     Route: 048
     Dates: start: 20090101
  2. ALLOPURINOL [Concomitant]

REACTIONS (3)
  - BACK DISORDER [None]
  - PARKINSON'S DISEASE [None]
  - SPINAL DISORDER [None]
